FAERS Safety Report 16424382 (Version 1)
Quarter: 2019Q2

REPORT INFORMATION
  Report Type: Spontaneous
  Country: US (occurrence: US)
  Receive Date: 20190613
  Receipt Date: 20190613
  Transmission Date: 20190711
  Serious: Yes (Hospitalization)
  Sender: FDA-Public Use
  Company Number: US-JNJFOC-20190614359

PATIENT
  Sex: Male

DRUGS (1)
  1. BENADRYL [Suspect]
     Active Substance: DIPHENHYDRAMINE HYDROCHLORIDE
     Indication: DRUG ERUPTION
     Dosage: 2 LIQUID GELS BEFORE BED AND THEN ONE LIQUID GEL EVERY 4 HOURS
     Route: 048

REACTIONS (2)
  - Product use in unapproved indication [Unknown]
  - Hypersensitivity [Not Recovered/Not Resolved]
